FAERS Safety Report 19227098 (Version 1)
Quarter: 2021Q2

REPORT INFORMATION
  Report Type: Spontaneous
  Country: PS (occurrence: PS)
  Receive Date: 20210507
  Receipt Date: 20210507
  Transmission Date: 20210717
  Serious: Yes (Hospitalization, Other)
  Sender: FDA-Public Use
  Company Number: PS-GRANULES-PS-2021GRALIT00274

PATIENT
  Age: 30 Year
  Sex: Female

DRUGS (5)
  1. AZATHIOPRINE. [Concomitant]
     Active Substance: AZATHIOPRINE
     Indication: MIXED CONNECTIVE TISSUE DISEASE
     Route: 065
  2. PREDNISONE. [Suspect]
     Active Substance: PREDNISONE
     Indication: MIXED CONNECTIVE TISSUE DISEASE
     Route: 065
  3. NAPROXEN. [Suspect]
     Active Substance: NAPROXEN
     Indication: MIXED CONNECTIVE TISSUE DISEASE
     Route: 065
  4. CAPTOPRIL. [Interacting]
     Active Substance: CAPTOPRIL
     Indication: SCLERODERMA RENAL CRISIS
     Route: 065
  5. NIFEDIPINE. [Concomitant]
     Active Substance: NIFEDIPINE
     Indication: MIXED CONNECTIVE TISSUE DISEASE
     Route: 065

REACTIONS (2)
  - Acute kidney injury [Recovered/Resolved]
  - Scleroderma renal crisis [Recovered/Resolved]
